FAERS Safety Report 9425019 (Version 4)
Quarter: 2013Q3

REPORT INFORMATION
  Report Type: Spontaneous
  Country: IT (occurrence: IT)
  Receive Date: 20130729
  Receipt Date: 20130809
  Transmission Date: 20140515
  Serious: Yes (Hospitalization)
  Sender: FDA-Public Use
  Company Number: IT-PFIZER INC-2013219279

PATIENT
  Age: 58 Year
  Sex: Female

DRUGS (2)
  1. TAZOCIN [Suspect]
     Indication: PNEUMONITIS
     Dosage: 4.5 MG, TOTAL
     Route: 042
     Dates: start: 20130704, end: 20130704
  2. PARACETAMOL [Concomitant]
     Dosage: 1 G (FREQUENCY UNKNOWN)
     Route: 042
     Dates: start: 20130702, end: 20130704

REACTIONS (3)
  - Bronchostenosis [Recovered/Resolved]
  - Oxygen saturation decreased [Recovered/Resolved]
  - Urticaria [Recovered/Resolved]
